FAERS Safety Report 13202289 (Version 1)
Quarter: 2017Q1

REPORT INFORMATION
  Report Type: Spontaneous
  Country: US (occurrence: US)
  Receive Date: 20170209
  Receipt Date: 20170209
  Transmission Date: 20170428
  Serious: No
  Sender: FDA-Public Use
  Company Number: US-PFIZER INC-2017049784

PATIENT
  Sex: Female

DRUGS (1)
  1. XELJANZ XR [Suspect]
     Active Substance: TOFACITINIB CITRATE
     Dosage: 11 MG, DAILY (CUTTING XELJANZ XR IN HALF)

REACTIONS (10)
  - Intentional product misuse [Unknown]
  - Rash [Unknown]
  - Muscular weakness [Unknown]
  - Condition aggravated [Unknown]
  - Muscle spasms [Unknown]
  - Insomnia [Unknown]
  - Fatigue [Unknown]
  - Activities of daily living impaired [Unknown]
  - Pain in extremity [Not Recovered/Not Resolved]
  - Tenderness [Unknown]
